FAERS Safety Report 21045560 (Version 1)
Quarter: 2022Q3

REPORT INFORMATION
  Report Type: Spontaneous
  Country: US (occurrence: US)
  Receive Date: 20220706
  Receipt Date: 20220706
  Transmission Date: 20221027
  Serious: Yes (Death, Hospitalization, Other)
  Sender: FDA-Public Use
  Company Number: US-APOTEX-2022AP009882

PATIENT
  Age: 11 Year
  Sex: Female

DRUGS (1)
  1. AMOXICILLIN\CLAVULANATE POTASSIUM [Suspect]
     Active Substance: AMOXICILLIN\CLAVULANATE POTASSIUM
     Indication: Pneumonia
     Dosage: UNK
     Route: 065

REACTIONS (6)
  - Respiratory failure [Fatal]
  - Lactic acidosis [Unknown]
  - Dehydration [Unknown]
  - Hypophosphataemia [Unknown]
  - Metabolic acidosis [Unknown]
  - Diarrhoea [Unknown]
